FAERS Safety Report 6580046-8 (Version None)
Quarter: 2010Q1

REPORT INFORMATION
  Report Type: 
  Country: None (occurrence: None)
  Receive Date: 20100203
  Receipt Date: 20100122
  Transmission Date: 20100710
  Serious: Yes (Hospitalization)
  Sender: FDA-Public Use
  Company Number: 09-002001

PATIENT
  Age: 25 Year

DRUGS (8)
  1. TACLONEX [Suspect]
     Indication: PSORIASIS
     Dosage: 60G PER DAY, TOPICAL
     Route: 061
     Dates: start: 20070101
  2. NOVATREX (METHYOTREXATE) [Concomitant]
  3. ENBREL [Concomitant]
  4. ACITRETIN [Concomitant]
  5. LEFLUNOMIDE (LEFL7UNOMIDE) [Concomitant]
  6. TENORMIN [Concomitant]
  7. IRBESARTAN [Concomitant]
  8. DAFLON (DIOSMIN) [Concomitant]

REACTIONS (13)
  - ADRENAL INSUFFICIENCY [None]
  - ARRHYTHMIA [None]
  - CONDUCTION DISORDER [None]
  - CUSHING'S SYNDROME [None]
  - DEPRESSION [None]
  - DIZZINESS [None]
  - ERYTHRODERMIC PSORIASIS [None]
  - HEADACHE [None]
  - HYPERKERATOSIS [None]
  - OVERDOSE [None]
  - SKIN DISCOLOURATION [None]
  - STRESS [None]
  - WEIGHT DECREASED [None]
